FAERS Safety Report 4607428-5 (Version None)
Quarter: 2005Q1

REPORT INFORMATION
  Report Type: 
  Country: None (occurrence: None)
  Receive Date: 20050309
  Receipt Date: 20050225
  Transmission Date: 20050727
  Serious: Yes (Death)
  Sender: FDA-Public Use
  Company Number: 212717

PATIENT
  Sex: Male

DRUGS (3)
  1. MABTHERA (RITUXIMAB) CONC FOR SOLUTION FOR INFUSION [Suspect]
     Indication: LYMPHOMA
     Dosage: SEE IMAGE
     Dates: start: 20040901, end: 20040901
  2. MABTHERA (RITUXIMAB) CONC FOR SOLUTION FOR INFUSION [Suspect]
     Indication: LYMPHOMA
     Dosage: SEE IMAGE
     Dates: start: 20040909, end: 20040909
  3. ZEVALIN [Suspect]
     Indication: LYMPHOMA
     Dosage: SEE IMAGE
     Dates: start: 20040909, end: 20040909

REACTIONS (1)
  - SEPSIS [None]
